FAERS Safety Report 7361389-7 (Version None)
Quarter: 2011Q1

REPORT INFORMATION
  Report Type: 
  Country: None (occurrence: None)
  Receive Date: 20110318
  Receipt Date: 20110311
  Transmission Date: 20110831
  Serious: Yes (Hospitalization)
  Sender: FDA-Public Use
  Company Number: ES-ELI_LILLY_AND_COMPANY-ES201103003868

PATIENT
  Sex: Female

DRUGS (6)
  1. PREVENCOR [Concomitant]
     Indication: HAEMANGIOMA
     Dosage: 1 D/F, DAILY (1/D)
     Route: 048
  2. COZAAR [Concomitant]
     Indication: HAEMANGIOMA
     Dosage: 1 D/F, DAILY (1/D)
     Route: 048
  3. FORTEO [Suspect]
     Indication: OSTEOPOROSIS
     Dosage: 20 UG, DAILY (1/D)
     Route: 058
     Dates: start: 20091116, end: 20110224
  4. FORTEO [Suspect]
     Dosage: 20 UG, DAILY (1/D)
     Route: 058
     Dates: start: 20110307
  5. LUMIGAN [Concomitant]
     Indication: GLAUCOMA
     Dosage: 1 D/F, DAILY (1/D)
     Route: 047
     Dates: end: 20110224
  6. XALATAN [Concomitant]
     Indication: GLAUCOMA
     Dosage: 1 D/F, DAILY (1/D)
     Route: 047
     Dates: start: 20110224

REACTIONS (1)
  - CARDIAC PACEMAKER INSERTION [None]
